FAERS Safety Report 26026900 (Version 1)
Quarter: 2025Q4

REPORT INFORMATION
  Report Type: Spontaneous
  Country: US (occurrence: US)
  Receive Date: 20251111
  Receipt Date: 20251111
  Transmission Date: 20260117
  Serious: No
  Sender: SANOFI AVENTIS
  Company Number: US-SANOFI-02709284

PATIENT
  Age: 33 Year
  Sex: Male

DRUGS (1)
  1. ADMELOG [Suspect]
     Active Substance: INSULIN LISPRO
     Indication: Pancreatogenous diabetes
     Dosage: 8-10 UNITS AC

REACTIONS (1)
  - Product use in unapproved indication [Unknown]
